FAERS Safety Report 9580305 (Version 1)
Quarter: 2013Q3

REPORT INFORMATION
  Report Type: Spontaneous
  Country: US (occurrence: None)
  Receive Date: 20130916
  Receipt Date: 20130916
  Transmission Date: 20140515
  Serious: Yes (Other)
  Sender: FDA-Public Use
  Company Number: JPI-P-033051

PATIENT
  Age: 66 Year
  Sex: Male
  Weight: 108.86 kg

DRUGS (10)
  1. XYREM (500 MILLIGRAM/MILLILITERS, SOLUTION) (SODIUM OXYBATE) [Suspect]
     Indication: NARCOLEPSY
     Route: 048
     Dates: start: 20120824
  2. HYDROCHLOROTHIAZIDE [Concomitant]
  3. ESOMEPRAZOLE [Concomitant]
  4. ARIPIPRAZOLE [Concomitant]
  5. LISDEXAMFETAMINE DIMESYLATE [Concomitant]
  6. TERAZOSIN HYDROCHLORIDE [Concomitant]
  7. SIMVASTATIN [Concomitant]
  8. VITAMIN D3 [Concomitant]
  9. BUPROPION HCL [Concomitant]
  10. ARMODAFINIL [Concomitant]

REACTIONS (1)
  - Depression [None]
